FAERS Safety Report 5016898-2 (Version None)
Quarter: 2006Q2

REPORT INFORMATION
  Report Type: 
  Country: None (occurrence: None)
  Receive Date: 20060526
  Receipt Date: 20060508
  Transmission Date: 20061013
  Serious: Yes (Hospitalization)
  Sender: FDA-Public Use
  Company Number: SE200602002379

PATIENT
  Age: 31 Year
  Sex: Female

DRUGS (2)
  1. ZYPREXA [Suspect]
     Dosage: 10 MG, ORAL
     Route: 048
  2. INSULIN [Concomitant]

REACTIONS (6)
  - ANXIETY [None]
  - INFECTION PARASITIC [None]
  - LACTATION DISORDER [None]
  - OLIGOMENORRHOEA [None]
  - PYREXIA [None]
  - SARCOIDOSIS [None]
